FAERS Safety Report 11827499 (Version 1)
Quarter: 2015Q4

REPORT INFORMATION
  Report Type: Spontaneous
  Country: ZA (occurrence: ZA)
  Receive Date: 20151211
  Receipt Date: 20151211
  Transmission Date: 20160305
  Serious: Yes (Hospitalization)
  Sender: FDA-Public Use
  Company Number: ZA-AMGEN-ZAFSP2015132581

PATIENT
  Age: 35 Year
  Sex: Female

DRUGS (6)
  1. TRAMADOL. [Concomitant]
     Active Substance: TRAMADOL
     Dosage: 100 MG, 1X/DAY
  2. ENBREL [Suspect]
     Active Substance: ETANERCEPT
     Indication: RHEUMATOID ARTHRITIS
     Dosage: 50 MG, WEEKLY
     Route: 065
     Dates: start: 201401
  3. NAPROXEN. [Concomitant]
     Active Substance: NAPROXEN
     Dosage: 500 MG, 2X/DAY (BD)
  4. TREPILINE                          /00002201/ [Concomitant]
     Dosage: 25 MG, 1X/DAY
  5. METHOTREXATE [Concomitant]
     Active Substance: METHOTREXATE
     Dosage: 2.5 MG, 1X/DAY
  6. OMEZ                               /00661201/ [Concomitant]
     Active Substance: OMEPRAZOLE
     Dosage: 20 MG, 1X/DAY

REACTIONS (3)
  - Drug ineffective [Unknown]
  - Arthralgia [Unknown]
  - Arthritis [Unknown]

NARRATIVE: CASE EVENT DATE: 201508
